FAERS Safety Report 6032939-8 (Version None)
Quarter: 2009Q1

REPORT INFORMATION
  Report Type: 
  Country: None (occurrence: None)
  Receive Date: 20090105
  Receipt Date: 20080227
  Transmission Date: 20090719
  Serious: Yes (Death, Hospitalization, Disabling, Other)
  Sender: FDA-Public Use
  Company Number: US-000351

PATIENT
  Age: 11 Year
  Sex: Male
  Weight: 35 kg

DRUGS (66)
  1. PROHANCE [Suspect]
     Indication: NUCLEAR MAGNETIC RESONANCE IMAGING
  2. MULTIHANCE [Suspect]
  3. MAGNEVIST [Suspect]
     Indication: NUCLEAR MAGNETIC RESONANCE IMAGING
     Dosage: 7ML X/DAY, 10ML X/DAY, 7.6ML
     Dates: start: 20030109, end: 20030109
  4. MAGNEVIST [Suspect]
     Indication: NUCLEAR MAGNETIC RESONANCE IMAGING
     Dosage: 7ML X/DAY, 10ML X/DAY, 7.6ML
     Dates: start: 20040522, end: 20040522
  5. MAGNEVIST [Suspect]
     Indication: NUCLEAR MAGNETIC RESONANCE IMAGING
     Dosage: 7ML X/DAY, 10ML X/DAY, 7.6ML
     Dates: start: 20040611, end: 20040611
  6. OMNISCAN [Suspect]
     Indication: NUCLEAR MAGNETIC RESONANCE IMAGING
     Dosage: X/DAY 8ML X/DAY, 8.8ML X/DAY, X/DAY, 8ML X/DAY, X/DAY, X/DAY
     Dates: start: 20030323, end: 20030323
  7. OMNISCAN [Suspect]
     Indication: NUCLEAR MAGNETIC RESONANCE IMAGING
     Dosage: X/DAY 8ML X/DAY, 8.8ML X/DAY, X/DAY, 8ML X/DAY, X/DAY, X/DAY
     Dates: start: 20030730, end: 20030730
  8. OMNISCAN [Suspect]
     Indication: NUCLEAR MAGNETIC RESONANCE IMAGING
     Dosage: X/DAY 8ML X/DAY, 8.8ML X/DAY, X/DAY, 8ML X/DAY, X/DAY, X/DAY
     Dates: start: 20030825, end: 20030825
  9. OMNISCAN [Suspect]
     Indication: NUCLEAR MAGNETIC RESONANCE IMAGING
     Dosage: X/DAY 8ML X/DAY, 8.8ML X/DAY, X/DAY, 8ML X/DAY, X/DAY, X/DAY
     Dates: start: 20030918, end: 20030918
  10. OMNISCAN [Suspect]
     Indication: NUCLEAR MAGNETIC RESONANCE IMAGING
     Dosage: X/DAY 8ML X/DAY, 8.8ML X/DAY, X/DAY, 8ML X/DAY, X/DAY, X/DAY
     Dates: start: 20040219, end: 20040219
  11. OMNISCAN [Suspect]
     Indication: NUCLEAR MAGNETIC RESONANCE IMAGING
     Dosage: X/DAY 8ML X/DAY, 8.8ML X/DAY, X/DAY, 8ML X/DAY, X/DAY, X/DAY
     Dates: start: 20040802, end: 20040802
  12. OMNISCAN [Suspect]
     Indication: NUCLEAR MAGNETIC RESONANCE IMAGING
     Dosage: X/DAY 8ML X/DAY, 8.8ML X/DAY, X/DAY, 8ML X/DAY, X/DAY, X/DAY
     Dates: start: 20041020, end: 20041020
  13. OPTIMARK [Suspect]
     Indication: NUCLEAR MAGNETIC RESONANCE IMAGING
     Dosage: 9ML X/DAY
     Dates: start: 20040514, end: 20040514
  14. CAPTOPRIL [Concomitant]
  15. CALCITRIOL [Concomitant]
  16. BICITRA (CITRIC ACID;SODIUM CITRATE) [Concomitant]
  17. CALCIUM CARBONATE (CALCIUM CARBONATE) [Concomitant]
  18. DIGOXIN [Concomitant]
  19. VINCRISTINE [Concomitant]
  20. CYCLOPHOSPHAMIDE [Concomitant]
  21. DEXAMETHASONE TAB [Concomitant]
  22. FILGRASTIM (FILGRASTIM) [Concomitant]
  23. FUROSEMIDE (FUROSEMIDE) [Concomitant]
  24. GABAPETIN (GABAPENTIN) [Concomitant]
  25. ACTIVASE [Concomitant]
  26. IFOSFAMIDE [Concomitant]
  27. ETOPOSIDE [Concomitant]
  28. FOLIC ACID [Concomitant]
  29. B COMPLEX (NICOTINAMIDE;PYRIDOXINE HYDROCHLORIDE;RIBOFLAVIN;THIAMINE H [Concomitant]
  30. BACTRIM [Concomitant]
  31. ACETAMINOPHEN [Concomitant]
  32. PHOSLO [Concomitant]
  33. NEPHRO-VITE RX (ASCORBIC ACID;FOLIC ACID;VITAMIN B NOS) [Concomitant]
  34. SODIUM BICARBONATE IN PLASTIC CONTAINER [Concomitant]
  35. TOPAMAX [Concomitant]
  36. CARBAMAZEPINE [Concomitant]
  37. VICODIN [Concomitant]
  38. RANITIDINE [Concomitant]
  39. MESNA [Concomitant]
  40. DIPHENHYDRAMINE HCL [Concomitant]
  41. METOCLOPRAMIDE [Concomitant]
  42. ONDANSETRON HCL [Concomitant]
  43. AMLODIPINE [Concomitant]
  44. EPOETIN ALFA (EPOETIN ALFA) [Concomitant]
  45. ALLOPURINOL [Concomitant]
  46. CALCIUM CARBONATE (CALCIUM CARBONATE) [Concomitant]
  47. FERROUS SULFATE TAB [Concomitant]
  48. BECAPLERMIN (BECAPLERMIN) [Concomitant]
  49. CALCITRIOL [Concomitant]
  50. TPN [Concomitant]
  51. DACTINOMYCIN [Concomitant]
  52. AMITRIPTYLINE HYDROCHLORIDE [Concomitant]
  53. RENAGEL [Concomitant]
  54. VALPROATE SODIUM [Concomitant]
  55. RED BLOOD CELLS [Concomitant]
  56. CALCIUM (CALCIUM CARBONATE;CALCIUM LACTOGLUCONATE) [Concomitant]
  57. CHEMOTHERAPEUTICS [Concomitant]
  58. METHOTREXATE [Concomitant]
  59. DOXORUBICIN (DOXORUBICIN HYDROCHLORIDE) [Concomitant]
  60. VITAMIN D [Concomitant]
  61. ANALGESICS [Concomitant]
  62. MERCAPTOPURINE [Concomitant]
  63. CYCLOPHOSPHAMIDE [Concomitant]
  64. TECHNETIUM 99M-MERCAPTOACETYLTRIGLYCINE (TECHNETIUM TC 99M) [Concomitant]
  65. CALCITONIN (CALCITONIN) [Concomitant]
  66. PAMIDRONATE DISODIUM [Concomitant]

REACTIONS (16)
  - CARDIAC ARREST [None]
  - DISCOMFORT [None]
  - ENDOCARDIAL FIBROSIS [None]
  - FIBROSIS [None]
  - JOINT CONTRACTURE [None]
  - METAPLASIA [None]
  - MOBILITY DECREASED [None]
  - MUSCLE CONTRACTURE [None]
  - MYOCARDIAL FIBROSIS [None]
  - NEPHROGENIC SYSTEMIC FIBROSIS [None]
  - PAIN IN EXTREMITY [None]
  - PULMONARY FIBROSIS [None]
  - SKIN INDURATION [None]
  - SKIN TIGHTNESS [None]
  - SUBCUTANEOUS NODULE [None]
  - XEROSIS [None]
